FAERS Safety Report 11525590 (Version 1)
Quarter: 2015Q3

REPORT INFORMATION
  Report Type: Report from Study
  Country: US (occurrence: US)
  Receive Date: 20150918
  Receipt Date: 20150918
  Transmission Date: 20151125
  Serious: Yes (Other)
  Sender: FDA-Public Use
  Company Number: US-EMD SERONO-7208205

PATIENT
  Sex: Female
  Weight: 67 kg

DRUGS (1)
  1. REBIF [Suspect]
     Active Substance: INTERFERON BETA-1A
     Indication: MULTIPLE SCLEROSIS
     Route: 058
     Dates: start: 20040906

REACTIONS (7)
  - Malignant melanoma [Recovered/Resolved]
  - Gait disturbance [Not Recovered/Not Resolved]
  - Injection site induration [Not Recovered/Not Resolved]
  - Ecchymosis [Not Recovered/Not Resolved]
  - Melanocytic naevus [Recovered/Resolved]
  - Peripheral vascular disorder [Not Recovered/Not Resolved]
  - Injection site erythema [Not Recovered/Not Resolved]

NARRATIVE: CASE EVENT DATE: 2009
